FAERS Safety Report 9836691 (Version 1)
Quarter: 2014Q1

REPORT INFORMATION
  Report Type: Spontaneous
  Country: FR (occurrence: FR)
  Receive Date: 20140123
  Receipt Date: 20140123
  Transmission Date: 20141002
  Serious: Yes (Hospitalization)
  Sender: FDA-Public Use
  Company Number: FR-009507513-1401FRA004859

PATIENT
  Age: 64 Year
  Sex: Female

DRUGS (8)
  1. JANUVIA [Suspect]
     Indication: TYPE 2 DIABETES MELLITUS
     Dosage: 100 MG, QD
     Route: 048
  2. ALLOPURINOL [Suspect]
     Dosage: 200 MG, QD
     Route: 048
     Dates: end: 20131224
  3. VALSARTAN [Suspect]
     Indication: HYPERTENSION
     Dosage: 160 MG, QD
     Route: 048
     Dates: end: 20131224
  4. HYDROCHLOROTHIAZIDE [Suspect]
     Indication: HYPERTENSION
     Dosage: 25 MG, QD
     Route: 048
     Dates: end: 20131224
  5. STAGID [Suspect]
     Indication: TYPE 2 DIABETES MELLITUS
     Dosage: 700 MG, TID
     Route: 048
  6. VERAPAMIL [Suspect]
     Indication: HYPERTENSION
     Dosage: 240 MG, QD
     Route: 048
  7. DAFLON (DIOSMIN (+) HESPERIDIN) [Suspect]
     Dosage: 500 MG, QD
     Route: 048
  8. LEVOTHYROX [Suspect]
     Indication: THYROIDITIS
     Dosage: 125 MICROGRAM, QD
     Route: 048

REACTIONS (1)
  - Interstitial lung disease [Not Recovered/Not Resolved]
